FAERS Safety Report 24398668 (Version 6)
Quarter: 2025Q2

REPORT INFORMATION
  Report Type: Spontaneous
  Country: DE (occurrence: DE)
  Receive Date: 20241004
  Receipt Date: 20250512
  Transmission Date: 20250717
  Serious: Yes (Other)
  Sender: DR REDDYS
  Company Number: None

PATIENT
  Sex: Female
  Weight: 65 kg

DRUGS (14)
  1. ANASTROZOLE [Suspect]
     Active Substance: ANASTROZOLE
     Indication: Breast cancer
     Dosage: 1 MG, QD??THERAPY START DATE: 08-MAY-2020
     Route: 048
     Dates: end: 20230511
  2. ANASTROZOLE [Suspect]
     Active Substance: ANASTROZOLE
     Indication: Hormone receptor positive HER2 negative breast cancer
     Dosage: 1 MG, QD?THERAPY START DATE: 08-MAY-2020
     Route: 048
     Dates: end: 20240524
  3. ANASTROZOLE [Suspect]
     Active Substance: ANASTROZOLE
     Dosage: 1 MG, QD (DAILY DOSE)??THERAPY START DATE: 08-MAY-2020
     Route: 048
     Dates: end: 20221025
  4. LETROZOLE [Suspect]
     Active Substance: LETROZOLE
     Indication: Breast cancer metastatic
     Dosage: 2.5 MG, QD
     Route: 048
     Dates: start: 20190213, end: 20200507
  5. LETROZOLE [Suspect]
     Active Substance: LETROZOLE
     Indication: Hormone receptor positive HER2 negative breast cancer
  6. KISQALI [Suspect]
     Active Substance: RIBOCICLIB SUCCINATE
     Indication: Hormone receptor positive HER2 negative breast cancer
     Dosage: 600 MG, TIW (600 MG, Q3W, THEN 7 DAYS PAUSED)
     Route: 048
     Dates: start: 20190213, end: 20190312
  7. KISQALI [Suspect]
     Active Substance: RIBOCICLIB SUCCINATE
     Indication: Breast cancer metastatic
     Dosage: 400 MG, TIW (400 MG, Q3W 7 DAYS PAUSED)
     Route: 048
     Dates: start: 20190327, end: 20190408
  8. KISQALI [Suspect]
     Active Substance: RIBOCICLIB SUCCINATE
     Dosage: 400 MG, TIW (400 MG, Q3W THEN 7 DAYS PAUSED)
     Route: 048
     Dates: start: 20190425, end: 20190522
  9. KISQALI [Suspect]
     Active Substance: RIBOCICLIB SUCCINATE
     Dosage: 400 MG, TIW (400 MG, Q3W THEN 7 DAYS PAUSED)
     Route: 048
     Dates: start: 20190831, end: 20221123
  10. KISQALI [Suspect]
     Active Substance: RIBOCICLIB SUCCINATE
     Dosage: 1200 MG, QW (400 MG, TIW (400 MG ADMINISTRATION SCHEME 21 DAYS INTAKE, 7 DAYS PAUSE))
     Route: 048
     Dates: start: 20230119, end: 20230511
  11. KISQALI [Suspect]
     Active Substance: RIBOCICLIB SUCCINATE
     Dosage: 200 MG, Q3W (THEN 7 DAYS PAUSED)??24-MAY-2024
     Route: 048
  12. KISQALI [Suspect]
     Active Substance: RIBOCICLIB SUCCINATE
     Dosage: 200 MG, QD (DAILY DOSE) (REGIMEN 21 DAYS INTAKE, 7 DAYS PAUSE)
     Route: 048
     Dates: start: 20230512, end: 20230621
  13. EXEMESTANE [Suspect]
     Active Substance: EXEMESTANE
     Indication: Hormone receptor positive HER2 negative breast cancer
     Dosage: 1 MG, QD (SCHEMA 21 DAYS INTAKE, 7 DAYS PAUSE)??THERAPY START DATE: 26-OCT-2022
     Route: 048
     Dates: end: 20230604
  14. EXEMESTANE [Suspect]
     Active Substance: EXEMESTANE
     Dosage: THERAPY START DATE: 26-OCT-2022?25 MG, QD
     Route: 048
     Dates: end: 20230604

REACTIONS (18)
  - Neutropenia [Recovered/Resolved]
  - Leukopenia [Recovered/Resolved]
  - Pneumonitis [Recovered/Resolved]
  - Leukopenia [Recovered/Resolved]
  - Leukopenia [Recovered/Resolved]
  - Arthralgia [Not Recovered/Not Resolved]
  - Neutropenia [Recovered/Resolved]
  - Fatigue [Not Recovered/Not Resolved]
  - Bone pain [Recovered/Resolved]
  - Oropharyngeal pain [Recovered/Resolved]
  - Cough [Recovered/Resolved]
  - Nausea [Recovered/Resolved]
  - Hot flush [Recovered/Resolved]
  - Musculoskeletal discomfort [Not Recovered/Not Resolved]
  - Sleep disorder [Recovered/Resolved]
  - Hot flush [Recovering/Resolving]
  - Sleep disorder [Unknown]
  - Pain in extremity [Not Recovered/Not Resolved]

NARRATIVE: CASE EVENT DATE: 20190313
